FAERS Safety Report 4489402-5 (Version None)
Quarter: 2004Q4

REPORT INFORMATION
  Report Type: 
  Country: None (occurrence: None)
  Receive Date: 20041101
  Receipt Date: 20020919
  Transmission Date: 20050328
  Serious: Yes (Death, Hospitalization, Disabling)
  Sender: FDA-Public Use
  Company Number: US-ABBOTT-02P-163-0200698-00

PATIENT
  Sex: Female

DRUGS (50)
  1. VICODIN ES [Suspect]
     Indication: CERVICOBRACHIAL SYNDROME
     Route: 048
     Dates: start: 19971208, end: 20020522
  2. VICODIN ES [Suspect]
     Dates: start: 20020607, end: 20030125
  3. VICODIN ES [Suspect]
     Dates: start: 20030709, end: 20030722
  4. VICODIN ES [Suspect]
     Dates: start: 20030808
  5. CELECOXIB [Suspect]
     Indication: OSTEOARTHRITIS
     Dates: start: 19990302, end: 19990322
  6. CELECOXIB [Suspect]
     Dates: start: 19991019, end: 20010106
  7. SERTRALINE HYDROCHLORIDE [Concomitant]
     Indication: DRUG USE FOR UNKNOWN INDICATION
     Dates: start: 19980103, end: 19990101
  8. SERTRALINE HYDROCHLORIDE [Concomitant]
  9. TRAMADOL HYDROCHLORIDE [Concomitant]
     Indication: DRUG USE FOR UNKNOWN INDICATION
     Dates: end: 19990315
  10. FLUOXETINE HYDROCHLORIDE [Concomitant]
     Indication: DRUG USE FOR UNKNOWN INDICATION
     Dates: start: 20000619
  11. MULTIVITAMIN [Concomitant]
     Indication: DRUG USE FOR UNKNOWN INDICATION
     Dates: start: 20001016
  12. FOLIC ACID [Concomitant]
     Indication: DRUG USE FOR UNKNOWN INDICATION
     Dates: start: 20001209
  13. LANSOPRAZOLE [Concomitant]
     Indication: DRUG USE FOR UNKNOWN INDICATION
     Dates: start: 20001209
  14. VHC [Concomitant]
     Indication: DRUG USE FOR UNKNOWN INDICATION
  15. PAROXETINE HYDROCHLORIDE [Concomitant]
     Indication: DRUG USE FOR UNKNOWN INDICATION
     Dates: start: 20001023
  16. RANITIDINE HYDROCHLORIDE [Concomitant]
     Indication: DRUG USE FOR UNKNOWN INDICATION
     Dates: start: 20010226
  17. VICOPROFEN [Concomitant]
     Indication: DRUG USE FOR UNKNOWN INDICATION
     Dates: start: 20011227
  18. VICOPROFEN [Concomitant]
     Dates: start: 20020125
  19. CLOPIDOGREL BISULFATE [Concomitant]
     Indication: DRUG USE FOR UNKNOWN INDICATION
     Dates: start: 20020522
  20. LACTULOSE [Concomitant]
     Indication: DRUG USE FOR UNKNOWN INDICATION
     Dates: start: 20020727
  21. OXYCONTIN [Concomitant]
     Indication: DRUG USE FOR UNKNOWN INDICATION
     Dates: start: 19990608
  22. AMITRIPTYLINE HYDROCHLORIDE [Concomitant]
     Indication: DRUG USE FOR UNKNOWN INDICATION
  23. BUSPIRONE HCL [Concomitant]
     Indication: DRUG USE FOR UNKNOWN INDICATION
     Dates: start: 20010827
  24. CEFADROXIL [Concomitant]
     Indication: DRUG USE FOR UNKNOWN INDICATION
  25. PSEUDOEPHEDRINE HYDROCHLORIDE [Concomitant]
     Indication: DRUG USE FOR UNKNOWN INDICATION
  26. METHYLPREDNISOLONE [Concomitant]
     Indication: DRUG USE FOR UNKNOWN INDICATION
     Dates: start: 20000909
  27. ESOMEPRAZOLE [Concomitant]
     Indication: DRUG USE FOR UNKNOWN INDICATION
  28. IBUPROFEN [Concomitant]
     Indication: DRUG USE FOR UNKNOWN INDICATION
     Dates: start: 20011101
  29. FOLATE [Concomitant]
     Indication: DRUG USE FOR UNKNOWN INDICATION
  30. SUCRALFATE [Concomitant]
     Indication: DRUG USE FOR UNKNOWN INDICATION
     Dates: start: 20021011
  31. NADOLOL [Concomitant]
     Indication: DRUG USE FOR UNKNOWN INDICATION
     Dates: start: 20000725
  32. LORAZEPAM [Concomitant]
     Indication: DRUG USE FOR UNKNOWN INDICATION
     Dates: start: 20020426
  33. FENTANYL [Concomitant]
     Indication: DRUG USE FOR UNKNOWN INDICATION
     Route: 062
     Dates: start: 20021007
  34. FENTANYL CITRATE [Concomitant]
     Indication: DRUG USE FOR UNKNOWN INDICATION
     Dates: start: 20030303
  35. PROPOXY HYDROCHLORIDE [Concomitant]
     Indication: DRUG USE FOR UNKNOWN INDICATION
     Dates: start: 20030916
  36. LORTAB [Concomitant]
     Indication: DRUG USE FOR UNKNOWN INDICATION
     Dosage: 1-2 PILLS QID
     Dates: start: 19950201, end: 19971208
  37. LORTAB [Concomitant]
     Dates: start: 19980225
  38. LORTAB [Concomitant]
     Dates: start: 20030722
  39. LORTAB [Concomitant]
     Dates: start: 20030728
  40. OXYCOCET [Concomitant]
     Indication: DRUG USE FOR UNKNOWN INDICATION
     Dates: start: 19990618
  41. OMEPRAZOLE [Concomitant]
     Indication: DRUG USE FOR UNKNOWN INDICATION
     Dates: start: 20000203
  42. DIAZEPAM [Concomitant]
     Indication: DRUG USE FOR UNKNOWN INDICATION
     Dates: start: 20001205, end: 20001206
  43. CEFUROXIME AXETIL [Concomitant]
     Indication: DRUG USE FOR UNKNOWN INDICATION
     Dates: start: 20020222
  44. LORATADINE [Concomitant]
     Indication: DRUG USE FOR UNKNOWN INDICATION
     Dates: start: 20020222
  45. SULFADIAZINE [Concomitant]
     Indication: DRUG USE FOR UNKNOWN INDICATION
     Dates: start: 20020517
  46. FUROSEMIDE [Concomitant]
     Indication: DRUG USE FOR UNKNOWN INDICATION
     Dates: start: 20020522
  47. ISOMAX [Concomitant]
     Indication: DRUG USE FOR UNKNOWN INDICATION
     Dates: start: 20021119
  48. LEVOFLOXACIN [Concomitant]
     Indication: DRUG USE FOR UNKNOWN INDICATION
     Dates: start: 20021119
  49. HUMABID [Concomitant]
     Indication: DRUG USE FOR UNKNOWN INDICATION
     Dates: start: 20030509
  50. ACETAMINOPHEN W/ CODEINE [Concomitant]
     Indication: DRUG USE FOR UNKNOWN INDICATION
     Dates: start: 20030728

REACTIONS (47)
  - ANAEMIA [None]
  - ANXIETY [None]
  - ARTHRALGIA [None]
  - ARTHRITIS [None]
  - BLOOD TEST ABNORMAL [None]
  - CELLULITIS [None]
  - COMA [None]
  - CONDITION AGGRAVATED [None]
  - CONFUSIONAL STATE [None]
  - DEAFNESS [None]
  - DEATH [None]
  - DIZZINESS [None]
  - DRUG DEPENDENCE [None]
  - FAECES DISCOLOURED [None]
  - FALL [None]
  - FATIGUE [None]
  - FEELING HOT [None]
  - FLANK PAIN [None]
  - GASTRITIS [None]
  - GASTROINTESTINAL HAEMORRHAGE [None]
  - HAEMATEMESIS [None]
  - HIATUS HERNIA [None]
  - HYPERSPLENISM ACQUIRED [None]
  - HYPOVOLAEMIC SHOCK [None]
  - JOINT DISLOCATION [None]
  - JOINT EFFUSION [None]
  - JOINT RANGE OF MOTION DECREASED [None]
  - LIVER DISORDER [None]
  - MENISCUS LESION [None]
  - MUSCLE STRAIN [None]
  - MYALGIA [None]
  - OEDEMA PERIPHERAL [None]
  - OSTEOARTHRITIS [None]
  - OSTEOPENIA [None]
  - OVERDOSE [None]
  - PAIN [None]
  - PAIN IN EXTREMITY [None]
  - PHLEBITIS [None]
  - PORTAL HYPERTENSION [None]
  - RECTAL HAEMORRHAGE [None]
  - SCRATCH [None]
  - SENSATION OF PRESSURE IN EAR [None]
  - SINUSITIS [None]
  - SPLENOMEGALY [None]
  - THROMBOCYTOPENIA [None]
  - VARICOSE VEIN [None]
  - VENOUS INSUFFICIENCY [None]
